FAERS Safety Report 18082070 (Version 1)
Quarter: 2020Q3

REPORT INFORMATION
  Report Type: Spontaneous
  Country: US (occurrence: US)
  Receive Date: 20200728
  Receipt Date: 20200728
  Transmission Date: 20201103
  Serious: No
  Sender: FDA-Public Use
  Company Number: US-PERRIGO-19US010704

PATIENT
  Age: 48 Year
  Sex: Male
  Weight: 76.19 kg

DRUGS (2)
  1. MINOXIDIL. [Suspect]
     Active Substance: MINOXIDIL
     Dosage: 1 ML, BID
     Route: 061
     Dates: start: 20190825, end: 20190826
  2. MINOXIDIL. [Suspect]
     Active Substance: MINOXIDIL
     Indication: ALOPECIA
     Dosage: 1 ML, BID
     Route: 061
     Dates: start: 2009, end: 2009

REACTIONS (5)
  - Ear discomfort [Unknown]
  - Dermatitis acneiform [Recovering/Resolving]
  - Application site erythema [Not Recovered/Not Resolved]
  - Swelling face [Recovering/Resolving]
  - Application site pruritus [Not Recovered/Not Resolved]

NARRATIVE: CASE EVENT DATE: 2009
